FAERS Safety Report 7422129-6 (Version None)
Quarter: 2011Q2

REPORT INFORMATION
  Report Type: 
  Country: None (occurrence: None)
  Receive Date: 20110418
  Receipt Date: 20110411
  Transmission Date: 20111010
  Serious: Yes (Other)
  Sender: FDA-Public Use
  Company Number: US-RB-025763-11

PATIENT
  Sex: Female

DRUGS (1)
  1. SUBOXONE [Suspect]
     Indication: DRUG DEPENDENCE
     Dosage: WAS WEENED OFF SUBOXONE
     Route: 065

REACTIONS (4)
  - SCREAMING [None]
  - SUICIDAL IDEATION [None]
  - AGITATION [None]
  - CRYING [None]
